FAERS Safety Report 24872970 (Version 1)
Quarter: 2025Q1

REPORT INFORMATION
  Report Type: Spontaneous
  Country: US (occurrence: US)
  Receive Date: 20250122
  Receipt Date: 20250122
  Transmission Date: 20250408
  Serious: Yes (Hospitalization, Other)
  Sender: GLAXOSMITHKLINE
  Company Number: US-GSK-US2025AMR005365

PATIENT

DRUGS (2)
  1. ALBUTEROL SULFATE [Suspect]
     Active Substance: ALBUTEROL SULFATE
     Indication: Bronchitis
     Dates: start: 2024
  2. VANCOMYCIN [Suspect]
     Active Substance: VANCOMYCIN
     Indication: Product used for unknown indication

REACTIONS (10)
  - Peripheral swelling [Unknown]
  - Diarrhoea [Unknown]
  - Clostridium difficile infection [Recovered/Resolved]
  - Implantable defibrillator insertion [Unknown]
  - Dysgeusia [Unknown]
  - Localised infection [Unknown]
  - Nasopharyngitis [Unknown]
  - Chills [Unknown]
  - Condition aggravated [Unknown]
  - Respiratory syncytial virus infection [Unknown]
